FAERS Safety Report 7958435-6 (Version None)
Quarter: 2011Q4

REPORT INFORMATION
  Report Type: 
  Country: None (occurrence: None)
  Receive Date: 20111205
  Receipt Date: 20111127
  Transmission Date: 20120403
  Serious: Yes (Other)
  Sender: FDA-Public Use
  Company Number: IT-AMGEN-GBRSP2011062541

PATIENT
  Age: 83 Year
  Sex: Female

DRUGS (1)
  1. NPLATE [Suspect]
     Indication: IDIOPATHIC THROMBOCYTOPENIC PURPURA
     Dosage: 1 MUG/KG, UNK

REACTIONS (2)
  - PLATELET COUNT INCREASED [None]
  - DEEP VEIN THROMBOSIS [None]
